FAERS Safety Report 7508324-6 (Version None)
Quarter: 2011Q2

REPORT INFORMATION
  Report Type: 
  Country: None (occurrence: None)
  Receive Date: 20110527
  Receipt Date: 20110523
  Transmission Date: 20111010
  Serious: Yes (Hospitalization, Disabling, Other)
  Sender: FDA-Public Use
  Company Number: US-ABBOTT-08P-163-0454889-00

PATIENT
  Sex: Female

DRUGS (2)
  1. HUMIRA [Suspect]
     Dates: end: 20080501
  2. HUMIRA [Suspect]
     Indication: CROHN'S DISEASE
     Dosage: LOADING DOSE
     Route: 058
     Dates: start: 20080401, end: 20080501

REACTIONS (13)
  - EMOTIONAL DISTRESS [None]
  - ALTERED VISUAL DEPTH PERCEPTION [None]
  - ACTIVITIES OF DAILY LIVING IMPAIRED [None]
  - OPTIC NEURITIS [None]
  - HEADACHE [None]
  - VISION BLURRED [None]
  - EYE PAIN [None]
  - CONVULSION [None]
  - BLINDNESS [None]
  - PAPILLOEDEMA [None]
  - PHOTOPHOBIA [None]
  - ANHEDONIA [None]
  - IMPAIRED WORK ABILITY [None]
